FAERS Safety Report 8502400-7 (Version None)
Quarter: 2012Q2

REPORT INFORMATION
  Report Type: 
  Country: None (occurrence: None)
  Receive Date: 20120405
  Receipt Date: 20100510
  Transmission Date: 20120825
  Serious: Yes (Other)
  Sender: FDA-Public Use
  Company Number: PHHY2010US27704

PATIENT
  Age: 78 Year
  Sex: Male

DRUGS (5)
  1. METFFORMIN HYDROCHLORIDE [Concomitant]
  2. AMARYL [Concomitant]
  3. VERAPAMIL [Concomitant]
  4. RECLAST [Suspect]
     Indication: OSTEITIS DEFORMANS
     Dosage: 5 MG, INTRAVENOUS
     Route: 042
     Dates: start: 20100127
  5. DIOVAN HCT [Concomitant]

REACTIONS (2)
  - BONE PAIN [None]
  - MYALGIA [None]
